FAERS Safety Report 6990090-4 (Version None)
Quarter: 2010Q3

REPORT INFORMATION
  Report Type: 
  Country: None (occurrence: None)
  Receive Date: 20100916
  Receipt Date: 20100421
  Transmission Date: 20110219
  Serious: Yes (Life-Threatening)
  Sender: FDA-Public Use
  Company Number: GB-PFIZER INC-2010042192

PATIENT
  Age: 40 Year
  Sex: Male
  Weight: 115 kg

DRUGS (5)
  1. LYRICA [Suspect]
     Indication: ANXIETY
     Dosage: 150 MG, 2X/DAY
     Route: 048
     Dates: start: 20100204, end: 20100303
  2. CLOZAPINE [Interacting]
     Indication: SCHIZOPHRENIA
     Dosage: 500 MG, 1X/DAY
  3. LAMOTRIGINE [Concomitant]
  4. OMEPRAZOLE [Concomitant]
  5. SIMVASTATIN [Concomitant]

REACTIONS (2)
  - DRUG INTERACTION [None]
  - DRUG LEVEL INCREASED [None]
